FAERS Safety Report 8593075-X (Version None)
Quarter: 2012Q3

REPORT INFORMATION
  Report Type: 
  Country: None (occurrence: None)
  Receive Date: 20120814
  Receipt Date: 20120807
  Transmission Date: 20120928
  Serious: Yes (Hospitalization)
  Sender: FDA-Public Use
  Company Number: JP-GLAXOSMITHKLINE-B0821910A

PATIENT
  Sex: Female

DRUGS (2)
  1. FLUNASE 50 MCG 28 METERED SPRAYS [Suspect]
     Indication: UPPER-AIRWAY COUGH SYNDROME
     Route: 045
  2. FLUTICASONE PROPIONATE/SALMETEROL [Suspect]
     Indication: ANALGESIC ASTHMA SYNDROME
     Route: 055

REACTIONS (7)
  - NASAL DISCOMFORT [None]
  - NASOPHARYNGITIS [None]
  - ASTHMA [None]
  - RHINORRHOEA [None]
  - PYREXIA [None]
  - DYSPHONIA [None]
  - PRODUCTIVE COUGH [None]
